FAERS Safety Report 9951207 (Version 1)
Quarter: 2014Q1

REPORT INFORMATION
  Report Type: Spontaneous
  Country: CN (occurrence: CN)
  Receive Date: 20140304
  Receipt Date: 20140304
  Transmission Date: 20141002
  Serious: Yes (Other)
  Sender: FDA-Public Use
  Company Number: CN-CELGENEUS-035-21660-14022818

PATIENT
  Sex: 0

DRUGS (12)
  1. ABRAXANE [Suspect]
     Indication: OVARIAN CANCER
     Route: 065
  2. ABRAXANE [Suspect]
     Indication: MALIGNANT PERITONEAL NEOPLASM
     Route: 065
  3. CARBOPLATIN [Concomitant]
     Indication: OVARIAN CANCER
     Route: 065
  4. CARBOPLATIN [Concomitant]
     Indication: MALIGNANT PERITONEAL NEOPLASM
  5. NEDAPLATIN [Concomitant]
     Indication: OVARIAN CANCER
     Route: 065
  6. NEDAPLATIN [Concomitant]
     Indication: MALIGNANT PERITONEAL NEOPLASM
  7. LOBAPLATIN [Concomitant]
     Indication: OVARIAN CANCER
     Route: 065
  8. LOBAPLATIN [Concomitant]
     Indication: MALIGNANT PERITONEAL NEOPLASM
  9. OXALIPLATIN [Concomitant]
     Indication: OVARIAN CANCER
     Route: 065
  10. OXALIPLATIN [Concomitant]
     Indication: MALIGNANT PERITONEAL NEOPLASM
  11. CISPLATIN [Concomitant]
     Indication: OVARIAN CANCER
     Route: 065
  12. CISPLATIN [Concomitant]
     Indication: MALIGNANT PERITONEAL NEOPLASM

REACTIONS (3)
  - Hepatic function abnormal [Unknown]
  - Bone marrow failure [Unknown]
  - No therapeutic response [Unknown]
